FAERS Safety Report 12005042 (Version 1)
Quarter: 2016Q1

REPORT INFORMATION
  Report Type: Spontaneous
  Country: KR (occurrence: KR)
  Receive Date: 20160204
  Receipt Date: 20160204
  Transmission Date: 20160526
  Serious: Yes (Other)
  Sender: FDA-Public Use
  Company Number: KR-JNJFOC-20160122172

PATIENT

DRUGS (1)
  1. INFLIXIMAB, RECOMBINANT [Suspect]
     Active Substance: INFLIXIMAB
     Indication: ANKYLOSING SPONDYLITIS
     Dosage: 2 HOUR INTRAVENOUS INFUSION AT WEEKS 0, 2 AND 6, AND THEN EVERY 8 WEEKS THEREAFTER UP TO WEEK 54
     Route: 042

REACTIONS (13)
  - Infusion related reaction [Unknown]
  - Upper respiratory tract infection [Unknown]
  - Herpes virus infection [Unknown]
  - Liver function test abnormal [Unknown]
  - Tuberculosis [Unknown]
  - Drug specific antibody present [Unknown]
  - Blood creatine phosphokinase increased [Unknown]
  - Sinusitis [Unknown]
  - Headache [Unknown]
  - Urinary tract infection [Unknown]
  - Latent tuberculosis [Unknown]
  - Neutropenia [Unknown]
  - Rash [Unknown]
